FAERS Safety Report 5979502-2 (Version None)
Quarter: 2008Q4

REPORT INFORMATION
  Report Type: 
  Country: None (occurrence: None)
  Receive Date: 20081204
  Receipt Date: 20081201
  Transmission Date: 20090506
  Serious: Yes (Life-Threatening, Other)
  Sender: FDA-Public Use
  Company Number: US-ROXANE LABORATORIES, INC.-2008-RO-00307RO

PATIENT
  Age: 46 Year
  Sex: Female

DRUGS (16)
  1. CITALOPRAM HYDROBROMIDE [Suspect]
     Indication: DEPRESSION
     Dosage: 20MG
  2. FLUCONAZOLE [Suspect]
     Dosage: 200MG
  3. METHOTREXATE [Suspect]
     Indication: ACUTE LYMPHOCYTIC LEUKAEMIA
     Route: 037
  4. PREDNISONE TAB [Suspect]
     Indication: ACUTE LYMPHOCYTIC LEUKAEMIA
  5. DEXAMETHASONE [Suspect]
     Dosage: 2.5MG
  6. ZOLPIDEM [Suspect]
  7. VINCRISTINE [Suspect]
     Indication: ACUTE LYMPHOCYTIC LEUKAEMIA
  8. IMATINIB MESYLATE [Suspect]
     Indication: ACUTE LYMPHOCYTIC LEUKAEMIA
  9. TOPIRAMATE [Suspect]
     Indication: COMPLEX REGIONAL PAIN SYNDROME
  10. DAPSONE [Suspect]
     Dosage: 100MG
  11. ACYCLOVIR [Suspect]
  12. ESOMEPRAZOLE MAGNESIUM [Suspect]
     Dosage: 20MG
  13. LOSARTAN POTASSIUM AND HYDROCHLOROTHIAZIDE [Suspect]
  14. LORAZEPAM [Concomitant]
     Indication: ELECTROENCEPHALOGRAM ABNORMAL
     Dosage: .5MG
     Route: 042
  15. PHENYTOIN [Concomitant]
     Dosage: 300MG
  16. OLANZAPINE [Concomitant]
     Indication: DELIRIUM
     Dosage: 2.5MG

REACTIONS (2)
  - DRUG INTERACTION [None]
  - SEROTONIN SYNDROME [None]
